FAERS Safety Report 12594332 (Version 1)
Quarter: 2016Q3

REPORT INFORMATION
  Report Type: Spontaneous
  Country: US (occurrence: US)
  Receive Date: 20160726
  Receipt Date: 20160726
  Transmission Date: 20161109
  Serious: No
  Sender: FDA-Public Use
  Company Number: US-UNITED THERAPEUTICS-UNT-2016-008306

PATIENT
  Age: 69 Year
  Sex: Female
  Weight: 64.85 kg

DRUGS (3)
  1. WARFARIN [Concomitant]
     Active Substance: WARFARIN
     Indication: PRODUCT USED FOR UNKNOWN INDICATION
  2. REMODULIN [Suspect]
     Active Substance: TREPROSTINIL
     Indication: PULMONARY HYPERTENSION
     Dosage: 0.074 ?G/KG, CONTINUING
     Route: 041
     Dates: start: 20130806
  3. REMODULIN [Suspect]
     Active Substance: TREPROSTINIL
     Dosage: 0.070 ?G/KG, CONTINUING
     Route: 041

REACTIONS (13)
  - Nausea [Unknown]
  - Fatigue [Unknown]
  - Pollakiuria [Unknown]
  - Dyspnoea [Unknown]
  - Headache [Unknown]
  - Heart rate increased [Unknown]
  - Flushing [Unknown]
  - Device issue [Unknown]
  - Hyperhidrosis [Unknown]
  - Somnolence [Unknown]
  - Asthenia [Unknown]
  - Diarrhoea [Unknown]
  - Overdose [Unknown]

NARRATIVE: CASE EVENT DATE: 201605
